FAERS Safety Report 6645704-5 (Version None)
Quarter: 2010Q1

REPORT INFORMATION
  Report Type: 
  Country: None (occurrence: None)
  Receive Date: 20100318
  Receipt Date: 20100318
  Transmission Date: 20100710
  Serious: Yes (Other)
  Sender: FDA-Public Use
  Company Number: None

PATIENT
  Age: 69 Year
  Sex: Male
  Weight: 122.0176 kg

DRUGS (13)
  1. XOLAIR [Suspect]
     Indication: ASTHMA
     Dosage: 375MG Q2WKS SQ
     Route: 058
     Dates: start: 20090424
  2. SINGULAIR [Concomitant]
  3. AVODART [Concomitant]
  4. FLONASE [Concomitant]
  5. SYMBICORT [Concomitant]
  6. PROTONIX [Concomitant]
  7. LOVASTATIN [Concomitant]
  8. LEVOTHYROXINE SODIUM [Concomitant]
  9. ZYRTEC [Concomitant]
  10. LISINOPRIL [Concomitant]
  11. VENTOLIN [Concomitant]
  12. ATENOLOL [Concomitant]
  13. PATANASE [Concomitant]

REACTIONS (1)
  - BASAL CELL CARCINOMA [None]
